FAERS Safety Report 4443218-4 (Version None)
Quarter: 2004Q3

REPORT INFORMATION
  Report Type: 
  Country: None (occurrence: None)
  Receive Date: 20040903
  Receipt Date: 20040903
  Transmission Date: 20050211
  Serious: Yes (Hospitalization, Disabling)
  Sender: FDA-Public Use
  Company Number: None

PATIENT
  Age: 82 Year
  Sex: Female
  Weight: 27.5333 kg

DRUGS (1)
  1. AUTOLOGOUS DENDRITIC CELLS [Suspect]
     Indication: MALIGNANT MELANOMA
     Dosage: 5 X 10(7) CELLS IV
     Route: 042
     Dates: start: 20040827

REACTIONS (2)
  - CEREBRAL HAEMORRHAGE [None]
  - METASTASES TO CENTRAL NERVOUS SYSTEM [None]
